FAERS Safety Report 5643066-3 (Version None)
Quarter: 2008Q1

REPORT INFORMATION
  Report Type: 
  Country: None (occurrence: None)
  Receive Date: 20080228
  Receipt Date: 20071221
  Transmission Date: 20080703
  Serious: Yes (Life-Threatening, Hospitalization, Disabling, Congenital Anomaly)
  Sender: FDA-Public Use
  Company Number: BE-MERCK-00042414M

PATIENT
  Age: 42 Year
  Sex: Female

DRUGS (2)
  1. HYZAAR [Suspect]
     Indication: ESSENTIAL HYPERTENSION
     Route: 048
  2. LOGIMAT [Suspect]
     Indication: HYPERTENSION
     Route: 048

REACTIONS (2)
  - DRUG EXPOSURE DURING PREGNANCY [None]
  - OLIGOHYDRAMNIOS [None]
